FAERS Safety Report 12912373 (Version 4)
Quarter: 2016Q4

REPORT INFORMATION
  Report Type: Spontaneous
  Country: US (occurrence: US)
  Receive Date: 20161104
  Receipt Date: 20161201
  Transmission Date: 20170207
  Serious: Yes (Other)
  Sender: FDA-Public Use
  Company Number: US-OMEROS CORPORATION-2016OME00038

PATIENT
  Age: 72 Year
  Sex: Male
  Weight: 95 kg

DRUGS (18)
  1. PHENYLEPHRINE [Concomitant]
     Active Substance: PHENYLEPHRINE\PHENYLEPHRINE HYDROCHLORIDE
     Dosage: UNK
     Dates: start: 20161012, end: 20161012
  2. ASPIRIN. [Concomitant]
     Active Substance: ASPIRIN
  3. LIDOCAINE PRESERVATIVE FREE [Concomitant]
     Dosage: UNK
     Dates: start: 20161012, end: 20161012
  4. OMIDRIA [Suspect]
     Active Substance: KETOROLAC\PHENYLEPHRINE
     Dosage: UNK UNK, ONCE
     Dates: start: 20161012, end: 20161012
  5. TAMSULOSIN [Concomitant]
     Active Substance: TAMSULOSIN
  6. CYCLOPENTOLATE. [Concomitant]
     Active Substance: CYCLOPENTOLATE
     Dosage: UNK
     Dates: start: 20161012, end: 20161012
  7. BETADINE [Concomitant]
     Active Substance: POVIDONE-IODINE
     Dosage: UNK
     Dates: start: 20161012, end: 20161012
  8. OFLOXACIN. [Concomitant]
     Active Substance: OFLOXACIN
     Dosage: UNK
     Dates: start: 20161012, end: 20161012
  9. BSS (ALCON) [Concomitant]
     Dosage: UNK
     Dates: start: 20161012, end: 20161012
  10. MYRBETRIQ [Concomitant]
     Active Substance: MIRABEGRON
  11. TETRACAINE. [Concomitant]
     Active Substance: TETRACAINE
     Dosage: UNK
     Dates: start: 20161012, end: 20161012
  12. MIOSTAT [Concomitant]
     Active Substance: CARBACHOL
     Dosage: UNK
     Dates: start: 20161012, end: 20161012
  13. FINASTERIDE. [Concomitant]
     Active Substance: FINASTERIDE
  14. KETOROLAC [Concomitant]
     Active Substance: KETOROLAC\KETOROLAC TROMETHAMINE
     Dosage: UNK
     Dates: start: 20161012, end: 20161012
  15. SIMVASTATIN. [Concomitant]
     Active Substance: SIMVASTATIN
  16. DUOVISC [Concomitant]
     Active Substance: CHONDROITIN SULFATE A\HYALURONATE SODIUM
  17. OMIDRIA [Suspect]
     Active Substance: KETOROLAC\PHENYLEPHRINE
     Indication: CATARACT OPERATION
     Dosage: UNK UNK, ONCE
     Dates: start: 20161012, end: 20161012
  18. VITAMIN B12 [Concomitant]
     Active Substance: CYANOCOBALAMIN

REACTIONS (4)
  - Toxic anterior segment syndrome [Recovered/Resolved]
  - Keratitis [Recovered/Resolved]
  - Visual acuity reduced [Recovered/Resolved]
  - Anterior chamber disorder [Recovered/Resolved]

NARRATIVE: CASE EVENT DATE: 20161012
